FAERS Safety Report 19455356 (Version 3)
Quarter: 2024Q1

REPORT INFORMATION
  Report Type: Report from Study
  Country: DE (occurrence: DE)
  Receive Date: 20210623
  Receipt Date: 20240327
  Transmission Date: 20240410
  Serious: Yes (Hospitalization, Other)
  Sender: FDA-Public Use
  Company Number: DE-ABBVIE-21K-062-3957416-00

PATIENT
  Age: 81 Year
  Sex: Female
  Weight: 83 kg

DRUGS (13)
  1. SKYRIZI [Suspect]
     Active Substance: RISANKIZUMAB-RZAA
     Indication: Psoriasis
     Route: 058
     Dates: start: 20200715, end: 20200715
  2. SKYRIZI [Suspect]
     Active Substance: RISANKIZUMAB-RZAA
     Indication: Psoriatic arthropathy
     Route: 058
     Dates: start: 20200715
  3. SKYRIZI [Suspect]
     Active Substance: RISANKIZUMAB-RZAA
     Indication: Psoriasis
  4. HUMALOG [Concomitant]
     Active Substance: INSULIN LISPRO
     Indication: Product used for unknown indication
     Dosage: TIME INTERVAL: 0.04166667 DAYS
     Route: 058
  5. LOSARTAN [Concomitant]
     Active Substance: LOSARTAN
     Indication: Product used for unknown indication
     Dosage: FORM STRENGTH: 2.5MILLIGRAM
  6. SITAGLIPTIN PHOSPHATE [Concomitant]
     Active Substance: SITAGLIPTIN PHOSPHATE
     Indication: Product used for unknown indication
     Dosage: FORM STRENGTH: 100MILLIGRAM
  7. METAMIZOL [Concomitant]
     Active Substance: METAMIZOLE SODIUM
     Indication: Product used for unknown indication
     Dosage: TIME INTERVAL: 0.33333333 DAYS
  8. METAMIZOL [Concomitant]
     Active Substance: METAMIZOLE SODIUM
     Indication: Product used for unknown indication
  9. GABAPENTIN [Concomitant]
     Active Substance: GABAPENTIN
     Indication: Product used for unknown indication
     Dosage: TIME INTERVAL: 0.33333333 DAYS
     Dates: end: 202107
  10. GABAPENTIN [Concomitant]
     Active Substance: GABAPENTIN
     Indication: Product used for unknown indication
  11. TORSEMIDE [Concomitant]
     Active Substance: TORSEMIDE
     Indication: Product used for unknown indication
  12. SITAGLIPTIN [Concomitant]
     Active Substance: SITAGLIPTIN
     Indication: Product used for unknown indication
  13. PENTAERYTHRITOL TETRANITRATE [Concomitant]
     Active Substance: PENTAERYTHRITOL TETRANITRATE
     Indication: Product used for unknown indication
     Dosage: FORM STRENGTH: 50MILLIGRAM

REACTIONS (61)
  - Dyspnoea exertional [Recovered/Resolved]
  - Hepatocellular carcinoma [Unknown]
  - Hepatic steatosis [Unknown]
  - Dry age-related macular degeneration [Not Recovered/Not Resolved]
  - Hepatic mass [Unknown]
  - Cardiac failure [Unknown]
  - Chronotropic incompetence [Recovered/Resolved]
  - Diastolic dysfunction [Unknown]
  - Cardiac valve disease [Unknown]
  - Liver disorder [Unknown]
  - Splenomegaly [Unknown]
  - Dyspnoea [Unknown]
  - Obstructive airways disorder [Unknown]
  - Lung diffusion disorder [Unknown]
  - Renal impairment [Unknown]
  - Coronary artery disease [Unknown]
  - Lung disorder [Unknown]
  - Obstructive airways disorder [Unknown]
  - Red blood cell count decreased [Recovered/Resolved]
  - Red blood cell count decreased [Unknown]
  - Varices oesophageal [Unknown]
  - Granulocyte count decreased [Unknown]
  - Reticulocyte count increased [Unknown]
  - Aortic arteriosclerosis [Unknown]
  - Angina pectoris [Unknown]
  - Blood glucose increased [Unknown]
  - Glycosylated haemoglobin increased [Unknown]
  - Blood chloride increased [Unknown]
  - Blood creatinine increased [Unknown]
  - Blood urea increased [Recovered/Resolved]
  - Low density lipoprotein increased [Unknown]
  - C-reactive protein increased [Unknown]
  - Blood alkaline phosphatase increased [Recovered/Resolved]
  - Gamma-glutamyltransferase increased [Unknown]
  - Alanine aminotransferase increased [Unknown]
  - General physical health deterioration [Unknown]
  - Aspartate aminotransferase [Unknown]
  - Blood fibrinogen decreased [Unknown]
  - Fibrin D dimer increased [Unknown]
  - Chronic obstructive pulmonary disease [Unknown]
  - Obesity [Unknown]
  - Hypertensive heart disease [Unknown]
  - Thrombocytopenia [Unknown]
  - Breath sounds abnormal [Unknown]
  - Glaucoma [Not Recovered/Not Resolved]
  - Oedema peripheral [Recovered/Resolved]
  - Varicose vein [Recovered/Resolved]
  - Carpal tunnel syndrome [Unknown]
  - Pancreatic steatosis [Unknown]
  - Bundle branch block right [Unknown]
  - Hyperglycaemia [Recovered/Resolved]
  - SARS-CoV-2 test negative [Unknown]
  - Polyneuropathy [Unknown]
  - Gastritis [Unknown]
  - Glycosylated haemoglobin increased [Unknown]
  - Type 2 diabetes mellitus [Recovering/Resolving]
  - Angina pectoris [Unknown]
  - Hiatus hernia [Unknown]
  - Chronotropic incompetence [Unknown]
  - Muscle spasms [Unknown]
  - Portal hypertensive gastropathy [Unknown]

NARRATIVE: CASE EVENT DATE: 20210301
